FAERS Safety Report 19874894 (Version 1)
Quarter: 2021Q3

REPORT INFORMATION
  Report Type: Spontaneous
  Country: US (occurrence: US)
  Receive Date: 20210922
  Receipt Date: 20210922
  Transmission Date: 20211014
  Serious: Yes (Other)
  Sender: FDA-Public Use
  Company Number: US-MYOVANT SCIENCES IRELAND LIMITED-2021MYSCI0900318

PATIENT
  Sex: Male

DRUGS (1)
  1. ORGOVYX [Suspect]
     Active Substance: RELUGOLIX
     Indication: PRODUCT USED FOR UNKNOWN INDICATION
     Dosage: UNK
     Route: 048

REACTIONS (5)
  - Chemical poisoning [Unknown]
  - Knee arthroplasty [Recovered/Resolved]
  - Coronary arterial stent insertion [Recovered/Resolved]
  - Hip arthroplasty [Recovered/Resolved]
  - Musculoskeletal discomfort [Unknown]
